FAERS Safety Report 10429535 (Version 1)
Quarter: 2014Q3

REPORT INFORMATION
  Report Type: Spontaneous
  Country: SI (occurrence: SI)
  Receive Date: 20140904
  Receipt Date: 20140904
  Transmission Date: 20150326
  Serious: Yes (Other)
  Sender: FDA-Public Use
  Company Number: SI-SA-2014SA115539

PATIENT
  Age: 52 Year
  Sex: Male
  Weight: 62 kg

DRUGS (4)
  1. RAMIPRIL. [Concomitant]
     Active Substance: RAMIPRIL
     Dates: start: 200903
  2. FABRAZYME [Suspect]
     Active Substance: AGALSIDASE BETA
     Indication: FABRY^S DISEASE
     Route: 042
     Dates: start: 20091005
  3. PROPAFENONE HYDROCHLORIDE. [Concomitant]
     Active Substance: PROPAFENONE HYDROCHLORIDE
     Dates: start: 20091120
  4. ACETYLSALICYLIC ACID [Concomitant]
     Active Substance: ASPIRIN
     Dates: start: 20091015

REACTIONS (1)
  - Atrial fibrillation [Recovered/Resolved]

NARRATIVE: CASE EVENT DATE: 20140821
